FAERS Safety Report 4923859-8 (Version None)
Quarter: 2006Q1

REPORT INFORMATION
  Report Type: 
  Country: None (occurrence: None)
  Receive Date: 20060227
  Receipt Date: 20060215
  Transmission Date: 20060701
  Serious: Yes (Death)
  Sender: FDA-Public Use
  Company Number: JP-MERCK-0602USA05135

PATIENT
  Age: 71 Year
  Sex: Male

DRUGS (7)
  1. PEPCID RPD [Suspect]
     Route: 048
     Dates: start: 20051227, end: 20060214
  2. PEPCID [Suspect]
     Route: 048
     Dates: start: 20051218, end: 20051226
  3. VALPROATE SODIUM [Suspect]
     Route: 048
     Dates: start: 20051227, end: 20051230
  4. VALPROATE SODIUM [Suspect]
     Route: 048
     Dates: start: 20051231, end: 20060214
  5. BENSERAZIDE HYDROCHLORIDE AND LEVODOPA [Concomitant]
     Route: 048
     Dates: start: 20051227, end: 20060110
  6. BENSERAZIDE HYDROCHLORIDE AND LEVODOPA [Concomitant]
     Route: 048
     Dates: start: 20060111, end: 20060214
  7. CERCINE [Concomitant]
     Route: 048
     Dates: start: 20051227, end: 20060213

REACTIONS (3)
  - NEUTROPENIA [None]
  - PLATELET COUNT DECREASED [None]
  - PYREXIA [None]
